FAERS Safety Report 7469152-3 (Version None)
Quarter: 2011Q2

REPORT INFORMATION
  Report Type: 
  Country: None (occurrence: None)
  Receive Date: 20110510
  Receipt Date: 20110419
  Transmission Date: 20111010
  Serious: Yes (Other)
  Sender: FDA-Public Use
  Company Number: US-BAYER-US-2007-002864

PATIENT
  Age: 59 Year
  Sex: Female

DRUGS (6)
  1. ESCITALOPRAM OXALATE [Concomitant]
  2. BLOOD PRESSURE MEDICATION [Concomitant]
  3. ALPRAZOLAM [Concomitant]
  4. BETASERON [Suspect]
     Dosage: UNK
     Dates: start: 20070312, end: 20070407
  5. BETASERON [Suspect]
     Dosage: 8 MIU QOD
     Dates: start: 20070522
  6. BETASERON [Suspect]
     Indication: MULTIPLE SCLEROSIS
     Dosage: 8 MIU, EVERY 2D
     Route: 058
     Dates: start: 20050821, end: 20070216

REACTIONS (7)
  - HALLUCINATION, AUDITORY [None]
  - DEPRESSION [None]
  - PARANOIA [None]
  - CONVULSION [None]
  - WEIGHT DECREASED [None]
  - DELUSIONAL DISORDER, UNSPECIFIED TYPE [None]
  - ANXIETY [None]
